FAERS Safety Report 4836229-8 (Version None)
Quarter: 2005Q4

REPORT INFORMATION
  Report Type: 
  Country: None (occurrence: None)
  Receive Date: 20051118
  Receipt Date: 20051103
  Transmission Date: 20060501
  Serious: Yes (Death)
  Sender: FDA-Public Use
  Company Number: 2005S1010844

PATIENT
  Age: 56 Year
  Sex: Female

DRUGS (16)
  1. CLOZAPINE [Suspect]
     Dosage: 50 MG;HS;ORAL
     Route: 048
     Dates: start: 20040930, end: 20050901
  2. CLOZAPINE [Suspect]
     Dosage: 200 MG;HS;ORAL
     Route: 048
     Dates: start: 20040930, end: 20050901
  3. INSULIN [Concomitant]
  4. LABETALOL HYDROCHLORIDE [Concomitant]
  5. METFORMIN HYDROCHLORIDE [Concomitant]
  6. SPIRONOLACTONE/HYDROCHLOROTHIAZIDE [Concomitant]
  7. LISINOPRIL [Concomitant]
  8. ROSIGLITAZONE MALEATE [Concomitant]
  9. ATORVASTATIN CALCIUM [Concomitant]
  10. GLIPIZIDE [Concomitant]
  11. FAMOTIDINE [Concomitant]
  12. METHYSERGIDE [Concomitant]
  13. VALPROATE SODIUM [Concomitant]
  14. ARIPIPRAZOLE [Concomitant]
  15. FUROSEMIDE [Concomitant]
  16. LORAZEPAM [Concomitant]

REACTIONS (1)
  - DEATH [None]
